FAERS Safety Report 16836562 (Version 2)
Quarter: 2019Q4

REPORT INFORMATION
  Report Type: Spontaneous
  Country: US (occurrence: US)
  Receive Date: 20190921
  Receipt Date: 20191004
  Transmission Date: 20200122
  Serious: Yes (Other)
  Sender: FDA-Public Use
  Company Number: US-AMGEN-USASP2019150965

PATIENT
  Age: 66 Year
  Sex: Female
  Weight: 76.83 kg

DRUGS (12)
  1. PROLIA [Suspect]
     Active Substance: DENOSUMAB
     Indication: OSTEOPOROSIS POSTMENOPAUSAL
     Dosage: 60 MILLIGRAM PER MILLILITRE, Q6MO
     Route: 058
  2. GABAPENTIN. [Concomitant]
     Active Substance: GABAPENTIN
     Dosage: 100 MILLIGRAM, BED TIME
     Route: 048
  3. AMLODIPINE BESYLATE AND BENAZEPRIL HYDROCHLORIDE [Concomitant]
     Active Substance: AMLODIPINE BESYLATE\BENAZEPRIL HYDROCHLORIDE
     Dosage: 1 DOSAGE FORM, QD
     Route: 048
  4. ENBREL [Suspect]
     Active Substance: ETANERCEPT
     Indication: RHEUMATOID ARTHRITIS
     Dosage: 50 MILLIGRAM PER MILLILITRE, QWK
     Route: 058
  5. ZOFRAN MELT [Concomitant]
     Dosage: 1 DOSAGE FORM, TID, AS NEEDED
  6. FOLIC ACID. [Concomitant]
     Active Substance: FOLIC ACID
     Dosage: 2 DOSAGE FORM, QD
  7. SYNTHROID [Concomitant]
     Active Substance: LEVOTHYROXINE SODIUM
     Dosage: UNK UNK, QD
  8. VALIUM [Concomitant]
     Active Substance: DIAZEPAM
     Dosage: 1 DOSAGE FORM, 1 HOUR BEFORE MRI
     Route: 048
  9. PAXIL [Concomitant]
     Active Substance: PAROXETINE HYDROCHLORIDE
     Dosage: UNK UNK, QD
  10. VITAMIN D [Concomitant]
     Active Substance: VITAMIN D NOS
     Dosage: UNK
  11. ATORVASTATIN [Concomitant]
     Active Substance: ATORVASTATIN
     Dosage: 1 DOSAGE FORM, QD
     Route: 048
  12. KRILL OIL [Concomitant]
     Active Substance: DIETARY SUPPLEMENT\KRILL OIL

REACTIONS (3)
  - Upper limb fracture [Unknown]
  - Peripheral swelling [Unknown]
  - Fall [Unknown]

NARRATIVE: CASE EVENT DATE: 2019
